FAERS Safety Report 8174724-7 (Version None)
Quarter: 2012Q1

REPORT INFORMATION
  Report Type: 
  Country: None (occurrence: None)
  Receive Date: 20120229
  Receipt Date: 20120221
  Transmission Date: 20120608
  Serious: Yes (Hospitalization)
  Sender: FDA-Public Use
  Company Number: JP-GLAXOSMITHKLINE-B0779403A

PATIENT
  Sex: Male

DRUGS (10)
  1. FUROSEMIDE [Concomitant]
     Indication: CARDIAC FAILURE
     Dosage: 20MG PER DAY
     Route: 048
  2. ETIZOLAM [Concomitant]
     Indication: INSOMNIA
     Dosage: .5MG PER DAY
     Route: 048
  3. MIGLITOL [Concomitant]
     Indication: DIABETES MELLITUS
     Dosage: 150MG PER DAY
     Route: 048
  4. SOTALOL HYDROCHLORIDE [Concomitant]
     Indication: CARDIAC FAILURE
     Dosage: 120MG PER DAY
     Route: 048
  5. URSO 250 [Concomitant]
     Indication: CHOLELITHIASIS
     Dosage: 600MG PER DAY
     Route: 048
  6. VALTREX [Suspect]
     Indication: HERPES ZOSTER
     Dosage: 3000MG PER DAY
     Route: 048
     Dates: start: 20120128, end: 20120201
  7. CANDESARTAN CILEXETIL [Concomitant]
     Indication: CARDIAC FAILURE
     Dosage: 12MG PER DAY
     Route: 048
  8. SPIRONOLACTONE [Concomitant]
     Indication: CARDIAC FAILURE
     Dosage: 25MG PER DAY
     Route: 048
  9. CARVEDILOL [Concomitant]
     Indication: CARDIAC FAILURE
     Dosage: 5MG PER DAY
     Route: 048
  10. MAGNESIUM OXIDE [Concomitant]
     Indication: CONSTIPATION
     Dosage: 1G PER DAY
     Route: 048

REACTIONS (10)
  - GAIT DISTURBANCE [None]
  - DYSARTHRIA [None]
  - RENAL FAILURE [None]
  - BLOOD CREATININE INCREASED [None]
  - BLOOD UREA INCREASED [None]
  - CEREBRAL INFARCTION [None]
  - DECREASED APPETITE [None]
  - RENAL IMPAIRMENT [None]
  - ATRIAL FIBRILLATION [None]
  - URINARY RETENTION [None]
